FAERS Safety Report 5386306-0 (Version None)
Quarter: 2007Q3

REPORT INFORMATION
  Report Type: 
  Country: None (occurrence: None)
  Receive Date: 20070710
  Receipt Date: 20070625
  Transmission Date: 20080115
  Serious: Yes (Other)
  Sender: FDA-Public Use
  Company Number: US020421

PATIENT
  Age: 34 Year
  Sex: Male
  Weight: 84.09 kg

DRUGS (1)
  1. ACTIQ [Suspect]
     Dosage: 600 U BUCCAL
     Route: 002
     Dates: start: 20050926

REACTIONS (4)
  - DELUSION [None]
  - DRUG ABUSER [None]
  - HALLUCINATION [None]
  - TACHYCARDIA [None]
